FAERS Safety Report 18740388 (Version 1)
Quarter: 2021Q1

REPORT INFORMATION
  Report Type: Spontaneous
  Country: US (occurrence: US)
  Receive Date: 20210114
  Receipt Date: 20210114
  Transmission Date: 20210419
  Serious: Yes (Other)
  Sender: FDA-Public Use
  Company Number: None

PATIENT
  Age: 27 Year
  Sex: Female
  Weight: 58.95 kg

DRUGS (1)
  1. LORYNA [Suspect]
     Active Substance: DROSPIRENONE\ETHINYL ESTRADIOL
     Indication: MENSTRUATION IRREGULAR
     Route: 048
     Dates: start: 20190206, end: 20190214

REACTIONS (2)
  - Product substitution issue [None]
  - Metrorrhagia [None]

NARRATIVE: CASE EVENT DATE: 20190214
